FAERS Safety Report 5373855-4 (Version None)
Quarter: 2007Q2

REPORT INFORMATION
  Report Type: 
  Country: None (occurrence: None)
  Receive Date: 20070628
  Receipt Date: 20070619
  Transmission Date: 20071010
  Serious: Yes (Hospitalization, Other)
  Sender: FDA-Public Use
  Company Number: BE-PFIZER INC-2007039653

PATIENT
  Sex: Male
  Weight: 53 kg

DRUGS (4)
  1. FELDENE [Suspect]
     Dosage: TEXT:20-460 MG. TDD
  2. UROPYRINE [Suspect]
  3. BENZODIAZEPINE DERIVATIVES [Suspect]
  4. DESLORATADINE [Concomitant]
     Route: 048

REACTIONS (10)
  - ASPARTATE AMINOTRANSFERASE INCREASED [None]
  - BLOOD BILIRUBIN INCREASED [None]
  - BLOOD CREATININE INCREASED [None]
  - BLOOD LACTATE DEHYDROGENASE INCREASED [None]
  - CHOLELITHIASIS [None]
  - CHROMATURIA [None]
  - MICROLITHIASIS [None]
  - OVERDOSE [None]
  - TONGUE DISCOLOURATION [None]
  - VOMITING [None]
